FAERS Safety Report 8320829-7 (Version None)
Quarter: 2012Q2

REPORT INFORMATION
  Report Type: 
  Country: None (occurrence: None)
  Receive Date: 20120430
  Receipt Date: 20120418
  Transmission Date: 20120825
  Serious: Yes (Hospitalization)
  Sender: FDA-Public Use
  Company Number: PHHY2012IT033639

PATIENT
  Sex: Male
  Weight: 86 kg

DRUGS (1)
  1. CERTICAN [Suspect]

REACTIONS (2)
  - NEPHROANGIOSCLEROSIS [None]
  - PROTEINURIA [None]
